FAERS Safety Report 24366420 (Version 1)
Quarter: 2024Q3

REPORT INFORMATION
  Report Type: Spontaneous
  Country: CA (occurrence: CA)
  Receive Date: 20240926
  Receipt Date: 20240926
  Transmission Date: 20241017
  Serious: Yes (Hospitalization)
  Sender: PFIZER
  Company Number: CA-PFIZER INC-202400262892

PATIENT
  Age: 73 Year
  Sex: Female

DRUGS (2)
  1. ABRILADA [Suspect]
     Active Substance: ADALIMUMAB-AFZB
     Indication: Crohn^s disease
     Dosage: 160 MG W0 , W2 80MG, THEN 40MG Q2 W
     Route: 058
     Dates: start: 20240619, end: 2024
  2. ABRILADA [Suspect]
     Active Substance: ADALIMUMAB-AFZB
     Dosage: 160 MG W0 , W2 80MG, THEN 40MG Q2 W
     Dates: start: 20240920

REACTIONS (1)
  - Gastric infection [Unknown]

NARRATIVE: CASE EVENT DATE: 20240901
